FAERS Safety Report 19576633 (Version 1)
Quarter: 2021Q3

REPORT INFORMATION
  Report Type: Spontaneous
  Country: US (occurrence: US)
  Receive Date: 20210719
  Receipt Date: 20210719
  Transmission Date: 20211014
  Serious: Yes (Hospitalization)
  Sender: FDA-Public Use
  Company Number: None

PATIENT
  Age: 50 Year
  Sex: Male

DRUGS (2)
  1. GEMCITABINE (GEMCITABINE HCL 200MG/VIL/INJ) [Suspect]
     Active Substance: GEMCITABINE HYDROCHLORIDE
     Indication: T-CELL LYMPHOMA
     Dosage: ?          OTHER ROUTE:IV?
     Route: 042
     Dates: start: 20210622, end: 20210624
  2. CISPLATIN (CISPLATIIN 100MG/VIL (PF) INJ) [Suspect]
     Active Substance: CISPLATIN
     Indication: T-CELL LYMPHOMA
     Dosage: ?          OTHER ROUTE:IV?
     Route: 042
     Dates: start: 20210622, end: 20210622

REACTIONS (6)
  - Hypotension [None]
  - Renal tubular necrosis [None]
  - Thrombocytopenia [None]
  - Tumour lysis syndrome [None]
  - Acute kidney injury [None]
  - Dialysis [None]

NARRATIVE: CASE EVENT DATE: 20210622
